FAERS Safety Report 4578826-3 (Version None)
Quarter: 2005Q1

REPORT INFORMATION
  Report Type: 
  Country: None (occurrence: None)
  Receive Date: 20050211
  Receipt Date: 20050202
  Transmission Date: 20050727
  Serious: Yes (Other)
  Sender: FDA-Public Use
  Company Number: US-BRISTOL-MYERS SQUIBB COMPANY-12850574

PATIENT
  Age: 44 Year
  Sex: Female

DRUGS (8)
  1. SERZONE [Suspect]
     Dates: start: 19970604, end: 20020401
  2. METHADONE HCL [Concomitant]
  3. BUSPAR [Concomitant]
  4. ALPRAZOLAM [Concomitant]
  5. DETROL [Concomitant]
  6. PRAVACHOL [Concomitant]
  7. ZANTAC [Concomitant]
  8. METAMUCIL-2 [Concomitant]

REACTIONS (4)
  - HEPATITIS C [None]
  - HYPERLIPIDAEMIA [None]
  - INTERNATIONAL NORMALISED RATIO DECREASED [None]
  - LIVER FUNCTION TEST ABNORMAL [None]
